FAERS Safety Report 7381878-9 (Version None)
Quarter: 2011Q1

REPORT INFORMATION
  Report Type: 
  Country: None (occurrence: None)
  Receive Date: 20110324
  Receipt Date: 20110324
  Transmission Date: 20110831
  Serious: No
  Sender: FDA-Public Use
  Company Number: None

PATIENT
  Age: 86 Year
  Sex: Female

DRUGS (2)
  1. RITUXAN [Suspect]
     Indication: B-CELL LYMPHOMA
     Dates: start: 20100715
  2. CYCLOPHOSPHAMIDE [Suspect]
     Dates: start: 20100715

REACTIONS (3)
  - HYPOXIA [None]
  - RALES [None]
  - CARBON MONOXIDE DIFFUSING CAPACITY DECREASED [None]
